FAERS Safety Report 7813863-4 (Version None)
Quarter: 2011Q4

REPORT INFORMATION
  Report Type: 
  Country: None (occurrence: None)
  Receive Date: 20111014
  Receipt Date: 20111011
  Transmission Date: 20120403
  Serious: Yes (Hospitalization, Other)
  Sender: FDA-Public Use
  Company Number: US-AMGEN-USASP2011049437

PATIENT
  Age: 76 Year
  Sex: Male
  Weight: 74.15 kg

DRUGS (9)
  1. PRAVASTATIN [Concomitant]
     Dosage: 20 MG, UNK
  2. NPLATE [Suspect]
     Indication: IDIOPATHIC THROMBOCYTOPENIC PURPURA
     Dosage: 1 MUG/KG, UNK
     Route: 058
     Dates: start: 20110513, end: 20111003
  3. RITUXAN [Concomitant]
     Indication: IDIOPATHIC THROMBOCYTOPENIC PURPURA
     Dosage: 670 UNK, QWK
     Route: 042
  4. ALENDRONATE SODIUM [Concomitant]
     Dosage: 70 MG, UNK
  5. CALCIUM+VIT D                      /00944201/ [Concomitant]
  6. MULTIVITAMIN                       /00097801/ [Concomitant]
  7. VITAMIN D [Concomitant]
     Dosage: 1000 UNIT, QD
  8. FINASTERIDE [Concomitant]
  9. TYLENOL (CAPLET) [Concomitant]

REACTIONS (1)
  - THROMBOCYTOPENIA [None]
